FAERS Safety Report 9728671 (Version 2)
Quarter: 2013Q4

REPORT INFORMATION
  Report Type: Spontaneous
  Country: IT (occurrence: IT)
  Receive Date: 20131204
  Receipt Date: 20131209
  Transmission Date: 20140711
  Serious: Yes (Hospitalization)
  Sender: FDA-Public Use
  Company Number: IT-PFIZER INC-2013343870

PATIENT
  Age: 79 Year
  Sex: Female

DRUGS (5)
  1. SUTENT [Suspect]
     Indication: RENAL CANCER METASTATIC
     Dosage: 50 MG, DAILY
     Route: 048
     Dates: start: 20131107
  2. PLAUNAC [Concomitant]
  3. ADALAT CRONO [Concomitant]
  4. PANTORC [Concomitant]
  5. CONTROL [Concomitant]

REACTIONS (3)
  - Epistaxis [Not Recovered/Not Resolved]
  - Hypertensive crisis [Not Recovered/Not Resolved]
  - Thrombocytopenia [Not Recovered/Not Resolved]
